FAERS Safety Report 5706867-9 (Version None)
Quarter: 2008Q2

REPORT INFORMATION
  Report Type: 
  Country: None (occurrence: None)
  Receive Date: 20080415
  Receipt Date: 20080415
  Transmission Date: 20081010
  Serious: Yes (Other)
  Sender: FDA-Public Use
  Company Number: None

PATIENT
  Age: 8 Year
  Sex: Male
  Weight: 32.659 kg

DRUGS (1)
  1. SINGULAIR [Suspect]
     Indication: ASTHMA
     Dosage: ONE PILL DAILY PO
     Route: 048
     Dates: start: 20070501, end: 20080328

REACTIONS (7)
  - ANGER [None]
  - DEPRESSION [None]
  - EMOTIONAL DISORDER [None]
  - INTENTIONAL SELF-INJURY [None]
  - MOOD SWINGS [None]
  - SUICIDAL IDEATION [None]
  - THINKING ABNORMAL [None]
